FAERS Safety Report 6060521-5 (Version None)
Quarter: 2009Q1

REPORT INFORMATION
  Report Type: 
  Country: None (occurrence: None)
  Receive Date: 20090202
  Receipt Date: 20081208
  Transmission Date: 20090719
  Serious: No
  Sender: FDA-Public Use
  Company Number: US-BAYER-200840347NA

PATIENT
  Age: 47 Year
  Sex: Male
  Weight: 118 kg

DRUGS (2)
  1. ULTRAVIST 370 [Suspect]
     Indication: ANGIOGRAM
     Dosage: TOTAL DAILY DOSE: 150 ML  UNIT DOSE: 150 ML
     Route: 042
     Dates: start: 20081208, end: 20081208
  2. PREDNISONE [Concomitant]
     Indication: PREMEDICATION
     Dosage: TOTAL DAILY DOSE: 90 MG
     Dates: start: 20081208, end: 20081208

REACTIONS (2)
  - SWELLING FACE [None]
  - URTICARIA [None]
